FAERS Safety Report 13210966 (Version 15)
Quarter: 2018Q4

REPORT INFORMATION
  Report Type: Report from Study
  Country: CA (occurrence: CA)
  Receive Date: 20170210
  Receipt Date: 20181128
  Transmission Date: 20190204
  Serious: Yes (Hospitalization, Other)
  Sender: FDA-Public Use
  Company Number: CA-SA-2016SA229814

PATIENT
  Age: 45 Year
  Sex: Female

DRUGS (12)
  1. CYANOCOBALAMIN. [Concomitant]
     Active Substance: CYANOCOBALAMIN
     Dosage: UNK UNK,UNK
     Route: 048
  2. ACICLOVIR [Concomitant]
     Active Substance: ACYCLOVIR
     Indication: PREMEDICATION
     Dosage: 200 MG,BID
     Route: 048
     Dates: start: 20161212
  3. REACTINE [CETIRIZINE HYDROCHLORIDE] [Concomitant]
     Active Substance: CETIRIZINE HYDROCHLORIDE
     Indication: PREMEDICATION
     Dosage: UNK UNK,UNK
     Route: 048
     Dates: start: 20161212, end: 20161214
  4. AMANTADINE. [Concomitant]
     Active Substance: AMANTADINE HYDROCHLORIDE
     Dosage: 100 MG,QD
     Route: 048
     Dates: start: 20130106
  5. ZOVIRAX [ACICLOVIR] [Concomitant]
     Dosage: 200 MG,BID
     Route: 048
     Dates: start: 20151201
  6. ERGOCALCIFEROL. [Concomitant]
     Active Substance: ERGOCALCIFEROL
     Dosage: 5000 IU,QD
     Route: 048
     Dates: start: 20121101
  7. METHYLPREDNISOLONE. [Concomitant]
     Active Substance: METHYLPREDNISOLONE
     Indication: PREMEDICATION
     Dosage: 1 G,UNK
     Route: 042
     Dates: start: 20161212, end: 20161214
  8. ACETAMINOPHEN. [Concomitant]
     Active Substance: ACETAMINOPHEN
     Indication: PREMEDICATION
     Dosage: 1 G,PRN
     Route: 048
     Dates: start: 20161212
  9. ALEMTUZUMAB [Suspect]
     Active Substance: ALEMTUZUMAB
     Indication: RELAPSING-REMITTING MULTIPLE SCLEROSIS
     Dosage: 12 MG,QD
     Route: 041
     Dates: start: 20161212, end: 20161214
  10. DIPHENHYDRAMINE. [Concomitant]
     Active Substance: DIPHENHYDRAMINE
     Indication: PREMEDICATION
     Dosage: 50 MG,UNK
     Route: 048
     Dates: start: 20161212, end: 20161214
  11. RANITIDINE. [Concomitant]
     Active Substance: RANITIDINE
     Dosage: 150 MG,UNK
     Route: 048
     Dates: start: 20161212, end: 20161214
  12. ASCORBIC ACID. [Concomitant]
     Active Substance: ASCORBIC ACID
     Dosage: 500 MG,UNK
     Route: 048

REACTIONS (36)
  - Fatigue [Recovered/Resolved]
  - Headache [Recovered/Resolved]
  - Pruritus [Recovered/Resolved]
  - Culture urine positive [Not Recovered/Not Resolved]
  - Pyrexia [Recovered/Resolved]
  - Cystitis [Not Recovered/Not Resolved]
  - Feeling hot [Recovered/Resolved]
  - Insomnia [Recovered/Resolved]
  - Erythema [Recovered/Resolved]
  - Night sweats [Recovered/Resolved]
  - Abdominal pain [Not Recovered/Not Resolved]
  - Muscular weakness [Not Recovered/Not Resolved]
  - Bacterial test [Unknown]
  - Dysphagia [Not Recovered/Not Resolved]
  - Ill-defined disorder [Recovered/Resolved]
  - Hospitalisation [Recovered/Resolved]
  - Multiple sclerosis [Not Recovered/Not Resolved]
  - Fall [Unknown]
  - Rash [Recovered/Resolved]
  - Choking sensation [Not Recovered/Not Resolved]
  - Ear pruritus [Recovered/Resolved]
  - Cough [Recovered/Resolved]
  - Poor quality sleep [Not Recovered/Not Resolved]
  - Urinary retention [Recovered/Resolved]
  - Rash papular [Recovered/Resolved]
  - Back pain [Not Recovered/Not Resolved]
  - Chills [Recovered/Resolved]
  - Nephrolithiasis [Not Recovered/Not Resolved]
  - Micturition urgency [Recovered/Resolved]
  - Muscle spasticity [Recovered/Resolved]
  - Asthenia [Recovering/Resolving]
  - Citrobacter infection [Not Recovered/Not Resolved]
  - Urinary tract infection bacterial [Recovered/Resolved]
  - Pruritus [Not Recovered/Not Resolved]
  - Nausea [Recovered/Resolved]
  - Fatigue [Not Recovered/Not Resolved]

NARRATIVE: CASE EVENT DATE: 20161212
